FAERS Safety Report 4284760-9 (Version None)
Quarter: 2004Q1

REPORT INFORMATION
  Report Type: 
  Country: None (occurrence: None)
  Receive Date: 20040130
  Receipt Date: 20040109
  Transmission Date: 20041129
  Serious: Yes (Hospitalization)
  Sender: FDA-Public Use
  Company Number: FR_030402242

PATIENT
  Age: 37 Year
  Sex: Female
  Weight: 64 kg

DRUGS (9)
  1. XIGRIS [Suspect]
     Indication: SEPTIC SHOCK
     Dosage: 24 UG/KG/HR/DAY
     Dates: start: 20030329, end: 20030329
  2. CLAFORAN [Concomitant]
  3. ERYTHROMYCINE ^BAILLEUL^ (ERYTHROMYCIN) [Concomitant]
  4. DOPAMINE [Concomitant]
  5. HYDROCORTISONE [Concomitant]
  6. VITAMIN K TAB [Concomitant]
  7. MIDAZOLAM HCL [Concomitant]
  8. FENTANYL [Concomitant]
  9. INSULIN [Concomitant]

REACTIONS (7)
  - ANAPHYLACTIC SHOCK [None]
  - BLOOD IMMUNOGLOBULIN E INCREASED [None]
  - COMPLEMENT FACTOR C3 DECREASED [None]
  - COMPLEMENT FACTOR C4 DECREASED [None]
  - EOSINOPHILIA [None]
  - HAEMATOCRIT DECREASED [None]
  - PHARMACEUTICAL PRODUCT COMPLAINT [None]
